FAERS Safety Report 7219924-5 (Version None)
Quarter: 2011Q1

REPORT INFORMATION
  Report Type: 
  Country: None (occurrence: None)
  Receive Date: 20110111
  Receipt Date: 20110104
  Transmission Date: 20110831
  Serious: Yes (Disabling)
  Sender: FDA-Public Use
  Company Number: PHHO2011GB00470

PATIENT
  Age: 73 Year
  Weight: 94 kg

DRUGS (3)
  1. VITAMIN D [Concomitant]
  2. CALCIUM [Concomitant]
  3. ZOLEDRONATE [Suspect]
     Indication: METASTASES TO BONE
     Dosage: 4MG
     Route: 042
     Dates: start: 20050324

REACTIONS (6)
  - SWELLING [None]
  - OSTEONECROSIS OF JAW [None]
  - BONE FRAGMENTATION [None]
  - ORAL DISORDER [None]
  - PURULENT DISCHARGE [None]
  - LOOSE TOOTH [None]
